FAERS Safety Report 6615981-5 (Version None)
Quarter: 2010Q1

REPORT INFORMATION
  Report Type: 
  Country: None (occurrence: None)
  Receive Date: 20100305
  Receipt Date: 20100227
  Transmission Date: 20100710
  Serious: Yes (Hospitalization)
  Sender: FDA-Public Use
  Company Number: A0848175A

PATIENT
  Sex: Female
  Weight: 120 kg

DRUGS (8)
  1. SERETIDE [Suspect]
     Indication: PNEUMONIA
     Dosage: 2PUFF PER DAY
     Route: 055
     Dates: start: 20090701
  2. DIOVAN [Concomitant]
     Dosage: 1TAB THREE TIMES PER DAY
     Dates: start: 20100213
  3. CARDIZEM [Concomitant]
     Dosage: 1TAB PER DAY
     Dates: start: 20090701
  4. HYDRALAZINE HCL [Concomitant]
     Dosage: 25MG THREE TIMES PER DAY
     Dates: start: 20090701
  5. SIMVASTATIN [Concomitant]
     Dosage: 1TAB PER DAY
     Dates: start: 20091001
  6. MAREVAN [Concomitant]
     Dosage: 2.5MG THREE TIMES PER DAY
     Dates: start: 20100213
  7. FORMOTEROL [Concomitant]
     Dosage: 2PUFF TWICE PER DAY
     Dates: start: 20090701
  8. ATROVENT [Concomitant]
     Dosage: 20DROP FOUR TIMES PER DAY
     Dates: start: 20100213

REACTIONS (4)
  - BRONCHOSPASM [None]
  - PNEUMONITIS [None]
  - PRODUCT QUALITY ISSUE [None]
  - PRODUCTIVE COUGH [None]
